FAERS Safety Report 14491828 (Version 5)
Quarter: 2018Q2

REPORT INFORMATION
  Report Type: Report from Study
  Country: US (occurrence: US)
  Receive Date: 20180206
  Receipt Date: 20180404
  Transmission Date: 20180711
  Serious: Yes (Other)
  Sender: FDA-Public Use
  Company Number: US-GILEAD-2017-0303986

PATIENT
  Age: 50 Year
  Sex: Female

DRUGS (8)
  1. TYVASO [Suspect]
     Active Substance: TREPROSTINIL
     Indication: PULMONARY ARTERIAL HYPERTENSION
     Dosage: 0.6 MG, QID
     Route: 065
  2. UPTRAVI [Suspect]
     Active Substance: SELEXIPAG
     Dosage: 1000 UG, BID
     Route: 065
     Dates: start: 20180303
  3. SILDENAFIL. [Suspect]
     Active Substance: SILDENAFIL
     Indication: PULMONARY ARTERIAL HYPERTENSION
     Dosage: 20 MG, TID
     Route: 065
     Dates: start: 20171108
  4. AMBRISENTAN [Suspect]
     Active Substance: AMBRISENTAN
     Dosage: 10 MG, QD
     Route: 065
     Dates: start: 20171031
  5. UPTRAVI [Suspect]
     Active Substance: SELEXIPAG
     Dosage: 600 UG, BID
     Route: 065
  6. AMBRISENTAN [Suspect]
     Active Substance: AMBRISENTAN
     Indication: PULMONARY HYPERTENSION
     Dosage: 5 MG, QD
     Route: 065
     Dates: start: 20171031
  7. UPTRAVI [Suspect]
     Active Substance: SELEXIPAG
     Indication: PULMONARY ARTERIAL HYPERTENSION
     Dosage: 800 UG, BID
     Route: 065
  8. TYVASO [Suspect]
     Active Substance: TREPROSTINIL
     Dosage: 0.54 MG, QID
     Route: 065
     Dates: start: 20171018

REACTIONS (13)
  - Throat irritation [Unknown]
  - Weight increased [Unknown]
  - Dyspnoea exertional [Unknown]
  - Headache [Unknown]
  - Drug dose omission [Unknown]
  - Swelling [Unknown]
  - Vomiting [Not Recovered/Not Resolved]
  - Thrombosis [Not Recovered/Not Resolved]
  - Cough [Unknown]
  - Sinusitis [Unknown]
  - Hypoaesthesia [Unknown]
  - Abdominal pain upper [Unknown]
  - Nausea [Unknown]

NARRATIVE: CASE EVENT DATE: 20171130
